FAERS Safety Report 23988541 (Version 2)
Quarter: 2024Q3

REPORT INFORMATION
  Report Type: Spontaneous
  Country: GB (occurrence: GB)
  Receive Date: 20240619
  Receipt Date: 20240703
  Transmission Date: 20241017
  Serious: Yes (Other)
  Sender: TEVA
  Company Number: GB-MHRA-TPP604490C1115363YC1718013396944

PATIENT
  Age: 41 Year
  Sex: Male
  Weight: 89 kg

DRUGS (8)
  1. LEVOFLOXACIN [Suspect]
     Active Substance: LEVOFLOXACIN
     Indication: Ill-defined disorder
     Dosage: ONE DAILY
     Route: 065
     Dates: start: 20240531
  2. MEBEVERINE HYDROCHLORIDE [Concomitant]
     Active Substance: MEBEVERINE HYDROCHLORIDE
     Indication: Ill-defined disorder
     Dosage: MEBEVERINE: 1 TO BE TAKEN TWICE DAILY
     Route: 065
     Dates: start: 20220523
  3. ATORVASTATIN [Concomitant]
     Active Substance: ATORVASTATIN
     Indication: Ill-defined disorder
     Dosage: TAKE ONE TABLET EVERY EVENING
     Route: 065
     Dates: start: 20231106
  4. METFORMIN HYDROCHLORIDE [Concomitant]
     Active Substance: METFORMIN HYDROCHLORIDE
     Indication: Ill-defined disorder
     Dosage: 2 WITH EVENING MEAL, DOSE FORM REPORTED: TPP YC - PLEASE RECLASSIFY
     Route: 065
     Dates: start: 20231020
  5. TRIMETHOPRIM [Concomitant]
     Active Substance: TRIMETHOPRIM
     Indication: Ill-defined disorder
     Dosage: TAKE ONE TWICE DAILY, DURATION: 4 DAYS
     Route: 065
     Dates: start: 20240605, end: 20240608
  6. CIPROFLOXACIN [Concomitant]
     Active Substance: CIPROFLOXACIN
     Indication: Ill-defined disorder
     Dosage: TAKE ONE TWICE DAILY, DOSE FORM REPORTED: TPP YC - PLEASE RECLASSIFY, DURATION: 15 DAYS
     Route: 065
     Dates: start: 20240517, end: 20240531
  7. GLIMEPIRIDE [Concomitant]
     Active Substance: GLIMEPIRIDE
     Indication: Ill-defined disorder
     Dosage: TAKE ONE TABLET IN A MORNING WITH BREAKFAST. TH..., DOSE FORM REPORTED: TPP YC - PLEASE RECLASSIFY
     Route: 065
     Dates: start: 20240429
  8. BUTYLSCOPOLAMINE BROMIDE [Concomitant]
     Active Substance: BUTYLSCOPOLAMINE BROMIDE
     Indication: Ill-defined disorder
     Dosage: TAKE TWO 4 TIMES/DAY
     Route: 065
     Dates: start: 20231106

REACTIONS (3)
  - Myalgia [Unknown]
  - Anxiety [Recovering/Resolving]
  - Insomnia [Unknown]

NARRATIVE: CASE EVENT DATE: 20240610
